FAERS Safety Report 8191912-4 (Version None)
Quarter: 2012Q1

REPORT INFORMATION
  Report Type: 
  Country: None (occurrence: None)
  Receive Date: 20120307
  Receipt Date: 20120227
  Transmission Date: 20120608
  Serious: Yes (Other)
  Sender: FDA-Public Use
  Company Number: PHHY2012BR017855

PATIENT
  Sex: Female

DRUGS (3)
  1. ALENIA [Concomitant]
  2. FORMOTEROL FUMARATE [Suspect]
     Indication: ASTHMA
  3. FORMOTEROL FUMARATE [Suspect]
     Indication: BRONCHITIS
     Dosage: UNK

REACTIONS (4)
  - RHINORRHOEA [None]
  - PYREXIA [None]
  - CHEST PAIN [None]
  - DYSPNOEA [None]
